FAERS Safety Report 14700537 (Version 3)
Quarter: 2018Q2

REPORT INFORMATION
  Report Type: Report from Study
  Country: CN (occurrence: CN)
  Receive Date: 20180330
  Receipt Date: 20180412
  Transmission Date: 20180711
  Serious: Yes (Hospitalization)
  Sender: FDA-Public Use
  Company Number: CN-AMGEN-CHNCT2018032513

PATIENT
  Age: 81 Year
  Sex: Male
  Weight: 79 kg

DRUGS (11)
  1. MOXIFLOXACIN. [Concomitant]
     Active Substance: MOXIFLOXACIN
     Dosage: 0.4 G, UNK
     Route: 048
     Dates: start: 20180102, end: 20180103
  2. AMINOPHYLLINE. [Concomitant]
     Active Substance: AMINOPHYLLINE
     Indication: RESPIRATORY TRACT INFECTION
     Dosage: 100 ML, QD
     Route: 042
     Dates: start: 20180208, end: 20180212
  3. CARFILZOMIB [Suspect]
     Active Substance: CARFILZOMIB
     Indication: PLASMA CELL MYELOMA
     Dosage: UNK MG, PER CHEMO REGIM
     Route: 042
     Dates: start: 20171107
  4. TYLENOL [Concomitant]
     Active Substance: ACETAMINOPHEN
     Dosage: 1 UNK, UNK AND 500 MG, UNK
     Route: 048
     Dates: start: 20171211
  5. ERTAPENEM. [Concomitant]
     Active Substance: ERTAPENEM SODIUM
     Indication: RESPIRATORY TRACT INFECTION
     Dosage: 1000 MG, QD
     Route: 042
     Dates: start: 20180208, end: 20180212
  6. LACTULOSE. [Concomitant]
     Active Substance: LACTULOSE
     Dosage: 1 UNK, UNK
     Route: 048
     Dates: start: 20171204, end: 20171206
  7. AMBROXOL HYDROCHLORIDE [Concomitant]
     Active Substance: AMBROXOL HYDROCHLORIDE
     Indication: RESPIRATORY TRACT INFECTION
     Dosage: 50 MG, QD
     Route: 042
     Dates: start: 20180208, end: 20180212
  8. ACYCLOVIR. [Concomitant]
     Active Substance: ACYCLOVIR
     Dosage: 200 G, UNK
     Route: 048
     Dates: start: 20171105
  9. DEXAMETHASONE. [Suspect]
     Active Substance: DEXAMETHASONE
     Indication: PLASMA CELL MYELOMA
     Dosage: UNK MG, PER CHEMO REGIM
     Route: 048
     Dates: start: 20171107
  10. DOMPERIDONE [Concomitant]
     Active Substance: DOMPERIDONE
     Dosage: 10 MG, UNK
     Route: 048
     Dates: start: 20171204, end: 20171206
  11. FAMOTIDINE. [Concomitant]
     Active Substance: FAMOTIDINE
     Dosage: 20 MG, UNK
     Route: 048
     Dates: start: 20171204, end: 20171206

REACTIONS (1)
  - Pyrexia [Recovered/Resolved]

NARRATIVE: CASE EVENT DATE: 20180227
